FAERS Safety Report 16434971 (Version 2)
Quarter: 2019Q2

REPORT INFORMATION
  Report Type: Spontaneous
  Country: US (occurrence: US)
  Receive Date: 20190614
  Receipt Date: 20190624
  Transmission Date: 20190711
  Serious: No
  Sender: FDA-Public Use
  Company Number: US-JNJFOC-20190540432

PATIENT
  Sex: Female
  Weight: 90.8 kg

DRUGS (2)
  1. TYLENOL [Suspect]
     Active Substance: ACETAMINOPHEN
     Indication: PSORIATIC ARTHROPATHY
     Route: 048
  2. SIMPONI ARIA [Suspect]
     Active Substance: GOLIMUMAB
     Indication: PSORIATIC ARTHROPATHY
     Route: 042
     Dates: start: 201902

REACTIONS (3)
  - Pain [Not Recovered/Not Resolved]
  - Hypersomnia [Unknown]
  - Drug ineffective [Not Recovered/Not Resolved]

NARRATIVE: CASE EVENT DATE: 2019
